FAERS Safety Report 5270569-6 (Version None)
Quarter: 2007Q1

REPORT INFORMATION
  Report Type: 
  Country: None (occurrence: None)
  Receive Date: 20070315
  Receipt Date: 20070305
  Transmission Date: 20070707
  Serious: Yes (Other)
  Sender: FDA-Public Use
  Company Number: C-07-0007

PATIENT
  Age: 65 Year
  Sex: Female
  Weight: 86.1834 kg

DRUGS (4)
  1. LIDOCAINE HCL [Suspect]
     Indication: ODYNOPHAGIA
     Dosage: 1/2 - 3/4 TSP. 4X/DAY TOPICAL
     Route: 061
     Dates: start: 20070304, end: 20070305
  2. LIDOCAINE HCL [Suspect]
     Indication: PHARYNGITIS
     Dosage: 1/2 - 3/4 TSP. 4X/DAY TOPICAL
     Route: 061
     Dates: start: 20070304, end: 20070305
  3. THYROID REPLACEMENT THERAPY [Concomitant]
  4. HYDROCHLOROTHIAZIDE [Concomitant]

REACTIONS (3)
  - DRUG INEFFECTIVE [None]
  - ORAL INTAKE REDUCED [None]
  - PERITONSILLAR ABSCESS [None]
